FAERS Safety Report 17069941 (Version 1)
Quarter: 2019Q4

REPORT INFORMATION
  Report Type: Other
  Country: CA (occurrence: CA)
  Receive Date: 20191125
  Receipt Date: 20191125
  Transmission Date: 20200122
  Serious: Yes (Hospitalization, Other)
  Sender: FDA-Public Use
  Company Number: CA-APOTEX-2019AP024844

PATIENT
  Age: 82 Year
  Sex: Female

DRUGS (2)
  1. DABIGATRAN [Interacting]
     Active Substance: DABIGATRAN
     Indication: ATRIAL FIBRILLATION
     Dosage: 150 MG, BID
     Route: 048
  2. CARBAMAZEPINE. [Suspect]
     Active Substance: CARBAMAZEPINE
     Indication: PRODUCT USED FOR UNKNOWN INDICATION
     Dosage: 100 MG, BID
     Route: 048

REACTIONS (5)
  - Chest discomfort [Recovered/Resolved]
  - Anaemia [Recovered/Resolved]
  - Chest pain [Recovered/Resolved]
  - Faeces discoloured [Recovered/Resolved]
  - Drug interaction [Recovered/Resolved]
